FAERS Safety Report 18211097 (Version 11)
Quarter: 2022Q1

REPORT INFORMATION
  Report Type: Other
  Country: CA (occurrence: None)
  Receive Date: 20200830
  Receipt Date: 20220203
  Transmission Date: 20220423
  Serious: Yes (Other)
  Sender: FDA-Public Use
  Company Number: CA-ROCHE-2437738

PATIENT
  Age: 51 Year
  Sex: Male

DRUGS (9)
  1. OCREVUS [Suspect]
     Active Substance: OCRELIZUMAB
     Indication: Primary progressive multiple sclerosis
     Dosage: 300 MG AT DAY 0 AND 14, THEN 600 MG EVERY 6 MONTH
     Route: 042
     Dates: start: 20190404
  2. OCREVUS [Suspect]
     Active Substance: OCRELIZUMAB
     Dosage: 600 MG EVERY 6 MONTH
     Route: 042
     Dates: start: 20191015
  3. BENADRYL [Suspect]
     Active Substance: DIPHENHYDRAMINE HYDROCHLORIDE
     Indication: Product used for unknown indication
     Route: 065
  4. BACLOFEN [Concomitant]
     Active Substance: BACLOFEN
     Indication: Restless legs syndrome
     Dosage: 10 MG AT NIGHT
  5. PRAMIPEXOLE [Concomitant]
     Active Substance: PRAMIPEXOLE
     Indication: Restless legs syndrome
     Dosage: 0.25 MG ONE AT 4 PM, AND ONE BEFORE BED
  6. TYLENOL [Concomitant]
     Active Substance: ACETAMINOPHEN
  7. ZYMAR [Concomitant]
     Active Substance: GATIFLOXACIN
     Dosage: 1ST WEEK IS 1 DROP IN RIGHT EYE 4 X DAY, 2ND WEEK IS 3 X DAY, 3RD WEEK IS 2 X DAY AND?4TH WEEK WILL
  8. VOLTAREN [Concomitant]
     Active Substance: DICLOFENAC SODIUM
     Dosage: 1ST WEEK IS 1 DROP IN RIGHT EYE 4 X DAY, 2ND WEEK IS 3 X DAY, 3RD WEEK IS 2 X DAY AND?4TH WEEK WILL
  9. PRED FORTE [Concomitant]
     Active Substance: PREDNISOLONE ACETATE
     Dosage: 1ST WEEK IS 1 DROP IN RIGHT EYE 4 X DAY, 2ND WEEK IS 3 X DAY, 3RD WEEK IS 2 X DAY AND?4TH WEEK WILL

REACTIONS (9)
  - Vitreous floaters [Recovered/Resolved]
  - Retinal detachment [Unknown]
  - Retinal tear [Recovered/Resolved]
  - Fatigue [Recovering/Resolving]
  - Somnolence [Recovered/Resolved]
  - Insomnia [Recovering/Resolving]
  - Visual field defect [Recovering/Resolving]
  - Photopsia [Recovering/Resolving]
  - Fall [Recovered/Resolved]

NARRATIVE: CASE EVENT DATE: 20190901
